FAERS Safety Report 4884206-3 (Version None)
Quarter: 2005Q4

REPORT INFORMATION
  Report Type: 
  Country: None (occurrence: None)
  Receive Date: 20051201
  Receipt Date: 20050909
  Transmission Date: 20060501
  Serious: No
  Sender: FDA-Public Use
  Company Number: 2005PV001967

PATIENT
  Age: 73 Year
  Sex: Male
  Weight: 252 kg

DRUGS (2)
  1. BYETTA [Suspect]
     Indication: DIABETES MELLITUS NON-INSULIN-DEPENDENT
     Dosage: 5 MCG; BID; SC
     Route: 058
     Dates: start: 20050904
  2. METFORMIN HCL [Concomitant]

REACTIONS (6)
  - DECREASED APPETITE [None]
  - DYSGEUSIA [None]
  - NAUSEA [None]
  - RETCHING [None]
  - SKIN ODOUR ABNORMAL [None]
  - WEIGHT DECREASED [None]
